FAERS Safety Report 19755961 (Version 1)
Quarter: 2021Q3

REPORT INFORMATION
  Report Type: Spontaneous
  Country: GB (occurrence: GB)
  Receive Date: 20210827
  Receipt Date: 20210827
  Transmission Date: 20211014
  Serious: Yes (Hospitalization)
  Sender: FDA-Public Use
  Company Number: GB-TEVA-2021-GB-1945868

PATIENT
  Age: 70 Year
  Sex: Female

DRUGS (7)
  1. BISOPROLOL [Concomitant]
     Active Substance: BISOPROLOL
     Dosage: 1.25MG TABLETS ONE TO BE TAKEN EACH DAY? INCEASED TO BD SINCE LAST WEDNESDAY
  2. WARFARIN [Suspect]
     Active Substance: WARFARIN
     Dosage: TAKING 4MG DAILY APART FROM FRIDAYS 5MG , LAST READING IN HOSPITAL 2.4
     Route: 065
  3. SALBUTAMOL [Concomitant]
     Active Substance: ALBUTEROL
     Indication: DYSPNOEA
     Dosage: 100MICROGRAMS/DOSE INHALER CFC FREE 2P PRN FOR BREATHLESSNESS 2 X 200 DOSE
  4. UMECLIDINIUM BROMIDE [Concomitant]
     Active Substance: UMECLIDINIUM BROMIDE
     Dosage: 65MICROGRAMS/DOSE
  5. VILANTEROL [Concomitant]
     Active Substance: VILANTEROL TRIFENATATE
     Dosage: 1 DOSAGE FORMS DAILY;  22MICROGRAMS/DOSE DRY POWDER INHALER ONE DOSE TO BE INHALED EACH MORNING 1 X
     Route: 055
  6. APIXABAN [Concomitant]
     Active Substance: APIXABAN
  7. DRONEDARONE [Concomitant]
     Active Substance: DRONEDARONE
     Dosage: 400 MG

REACTIONS (1)
  - Epistaxis [Recovering/Resolving]
